FAERS Safety Report 6612534-X (Version None)
Quarter: 2010Q1

REPORT INFORMATION
  Report Type: 
  Country: None (occurrence: None)
  Receive Date: 20100303
  Receipt Date: 20100219
  Transmission Date: 20100710
  Serious: Yes (Other)
  Sender: FDA-Public Use
  Company Number: PL-PFIZER INC-2009316367

PATIENT
  Age: 65 Year
  Sex: Male
  Weight: 115 kg

DRUGS (3)
  1. BLINDED *NO SUBJECT DRUG [Suspect]
     Indication: CARDIAC FAILURE
     Dosage: UNK, 2X/DAY
     Route: 048
     Dates: start: 20060913
  2. BLINDED *PLACEBO [Suspect]
     Indication: CARDIAC FAILURE
     Dosage: UNK, 2X/DAY
     Route: 048
     Dates: start: 20060913
  3. BLINDED EPLERENONE [Suspect]
     Indication: CARDIAC FAILURE
     Dosage: UNK, 2X/DAY
     Route: 048
     Dates: start: 20060913

REACTIONS (1)
  - PROSTATE CANCER [None]
